FAERS Safety Report 12871905 (Version 1)
Quarter: 2016Q4

REPORT INFORMATION
  Report Type: Spontaneous
  Country: BR (occurrence: BR)
  Receive Date: 20161021
  Receipt Date: 20161021
  Transmission Date: 20170207
  Serious: Yes (Other)
  Sender: FDA-Public Use
  Company Number: BR-009507513-1610BRA010264

PATIENT
  Age: 64 Year
  Sex: Female

DRUGS (2)
  1. JANUMET [Suspect]
     Active Substance: METFORMIN HYDROCHLORIDE\SITAGLIPTIN PHOSPHATE
     Dosage: 50/850 MG, TWICE A DAY
     Route: 048
  2. JANUMET [Suspect]
     Active Substance: METFORMIN HYDROCHLORIDE\SITAGLIPTIN PHOSPHATE
     Indication: DIABETES MELLITUS
     Dosage: 50/850 MG, ONCE DAILY
     Route: 048

REACTIONS (4)
  - Intentional product misuse [Unknown]
  - Diverticulitis [Unknown]
  - Product use issue [Unknown]
  - Prescribed underdose [Unknown]

NARRATIVE: CASE EVENT DATE: 201610
